FAERS Safety Report 4327805-X (Version None)
Quarter: 2004Q1

REPORT INFORMATION
  Report Type: 
  Country: None (occurrence: None)
  Receive Date: 20040325
  Receipt Date: 20040309
  Transmission Date: 20041129
  Serious: Yes (Hospitalization)
  Sender: FDA-Public Use
  Company Number: AU-JNJFOC-20040304622

PATIENT
  Age: 88 Year
  Sex: Female

DRUGS (2)
  1. TRAMADOL HCL [Suspect]
     Dosage: 100 MG, ORAL
     Route: 048
     Dates: end: 20030507
  2. AVANZA (MIRTAZAPINE) [Suspect]
     Dosage: 15 MG, 1 IN 1 DAY, ORAL
     Route: 048
     Dates: start: 20030505, end: 20030507

REACTIONS (6)
  - CIRCULATORY COLLAPSE [None]
  - CONFUSIONAL STATE [None]
  - DISORIENTATION [None]
  - DRUG INTERACTION [None]
  - HYPOTHERMIA [None]
  - RADIUS FRACTURE [None]
